FAERS Safety Report 6209557-1 (Version None)
Quarter: 2009Q2

REPORT INFORMATION
  Report Type: 
  Country: None (occurrence: None)
  Receive Date: 20090601
  Receipt Date: 20090520
  Transmission Date: 20091009
  Serious: Yes (Other)
  Sender: FDA-Public Use
  Company Number: US-WYE-H09184009

PATIENT
  Age: 50 Year
  Sex: Female
  Weight: 47.67 kg

DRUGS (1)
  1. RELISTOR [Suspect]
     Indication: ILEUS
     Dosage: 8 MG, RECEIVED TWICE AFTER A LAPAROSCOPY
     Route: 058
     Dates: end: 20090301

REACTIONS (1)
  - INTUSSUSCEPTION [None]
